FAERS Safety Report 8427910-2 (Version None)
Quarter: 2012Q2

REPORT INFORMATION
  Report Type: 
  Country: None (occurrence: None)
  Receive Date: 20120611
  Receipt Date: 20120531
  Transmission Date: 20120825
  Serious: Yes (Other)
  Sender: FDA-Public Use
  Company Number: GB-ASTRAZENECA-2012SE36420

PATIENT
  Age: 18 Year
  Sex: Female

DRUGS (1)
  1. MEROPENEM [Suspect]
     Indication: CYSTIC FIBROSIS
     Route: 042
     Dates: start: 20120516, end: 20120516

REACTIONS (4)
  - FLUSHING [None]
  - ANAPHYLACTIC REACTION [None]
  - CHEST DISCOMFORT [None]
  - CHEST PAIN [None]
